FAERS Safety Report 25351506 (Version 2)
Quarter: 2025Q3

REPORT INFORMATION
  Report Type: Spontaneous
  Country: CA (occurrence: CA)
  Receive Date: 20250523
  Receipt Date: 20250821
  Transmission Date: 20251021
  Serious: Yes (Other)
  Sender: ROCHE
  Company Number: CA-ROCHE-10000290853

PATIENT
  Age: 69 Year
  Sex: Female

DRUGS (2)
  1. RITUXIMAB [Suspect]
     Active Substance: RITUXIMAB
     Indication: Rheumatoid arthritis
     Route: 042
  2. SULFATRIM [Concomitant]
     Active Substance: SULFAMETHOXAZOLE\TRIMETHOPRIM
     Indication: Product used for unknown indication
     Route: 065

REACTIONS (8)
  - Dysarthria [Recovering/Resolving]
  - Inappropriate schedule of product administration [Unknown]
  - Infection [Recovering/Resolving]
  - Influenza [Recovering/Resolving]
  - Pertussis [Recovering/Resolving]
  - Pruritus [Recovering/Resolving]
  - Rheumatoid arthritis [Recovering/Resolving]
  - Dyspnoea [Recovering/Resolving]
